FAERS Safety Report 5947741-2 (Version None)
Quarter: 2008Q4

REPORT INFORMATION
  Report Type: 
  Country: None (occurrence: None)
  Receive Date: 20081110
  Receipt Date: 20081110
  Transmission Date: 20090506
  Serious: Yes (Life-Threatening, Other)
  Sender: FDA-Public Use
  Company Number: None

PATIENT
  Age: 63 Year
  Sex: Male
  Weight: 83.9154 kg

DRUGS (1)
  1. XANAX [Suspect]
     Indication: CARDIAC DISORDER
     Dosage: 1 TABLET DAILY OR PRN PO
     Route: 048
     Dates: start: 20081026, end: 20081103

REACTIONS (2)
  - PRODUCT QUALITY ISSUE [None]
  - THERAPEUTIC RESPONSE UNEXPECTED [None]
